FAERS Safety Report 7450123-8 (Version None)
Quarter: 2011Q2

REPORT INFORMATION
  Report Type: 
  Country: None (occurrence: None)
  Receive Date: 20110428
  Receipt Date: 20110428
  Transmission Date: 20111010
  Serious: No
  Sender: FDA-Public Use
  Company Number: None

PATIENT
  Age: 61 Year
  Sex: Female

DRUGS (1)
  1. PROCRIT [Suspect]
     Dosage: 20,000 UNITS, WEEKLY, SC
     Route: 058
     Dates: start: 20100913, end: 20110422

REACTIONS (1)
  - CEREBROVASCULAR ACCIDENT [None]
